FAERS Safety Report 9775299 (Version 1)
Quarter: 2013Q4

REPORT INFORMATION
  Report Type: Spontaneous
  Country: US (occurrence: None)
  Receive Date: 20131219
  Receipt Date: 20131219
  Transmission Date: 20140711
  Serious: No
  Sender: FDA-Public Use
  Company Number: None

PATIENT
  Age: 41 Year
  Sex: Male
  Weight: 88.91 kg

DRUGS (5)
  1. SERTRALINE [Suspect]
     Indication: DEPRESSION
     Dosage: ONE TABLET
     Route: 048
  2. VIREAD 300MG GILEAD SCIENCES [Concomitant]
  3. SUSTIVA 600MG [Concomitant]
  4. EPZICOM 600-300MG [Concomitant]
  5. ZOLOFT 50MG [Concomitant]

REACTIONS (2)
  - Treatment failure [None]
  - Product substitution issue [None]
